FAERS Safety Report 14439269 (Version 1)
Quarter: 2018Q1

REPORT INFORMATION
  Report Type: Report from Study
  Country: DE (occurrence: DE)
  Receive Date: 20180125
  Receipt Date: 20180125
  Transmission Date: 20180509
  Serious: Yes (Life-Threatening, Hospitalization)
  Sender: FDA-Public Use
  Company Number: PHHY2018DE001124

PATIENT
  Age: 70 Year
  Sex: Male
  Weight: 90 kg

DRUGS (1)
  1. ENTRESTO [Suspect]
     Active Substance: SACUBITRIL\VALSARTAN
     Indication: CARDIAC FAILURE
     Dosage: 200 MG (97MG OF SACUBITRIL AND 103MG OF VALSARTAN), UNK
     Route: 048
     Dates: start: 20170221

REACTIONS (3)
  - Supraventricular tachycardia [Recovered/Resolved]
  - Device damage [Recovered/Resolved]
  - Blood potassium decreased [Recovered/Resolved]

NARRATIVE: CASE EVENT DATE: 20171223
